FAERS Safety Report 21015060 (Version 1)
Quarter: 2022Q3

REPORT INFORMATION
  Report Type: Spontaneous
  Country: US (occurrence: US)
  Receive Date: 20220628
  Receipt Date: 20220628
  Transmission Date: 20221027
  Serious: Yes (Other)
  Sender: FDA-Public Use
  Company Number: US-NOVARTISPH-NVSC2022US143779

PATIENT
  Age: 10 Year
  Sex: Male

DRUGS (2)
  1. NOREPINEPHRINE [Suspect]
     Active Substance: NOREPINEPHRINE
     Indication: Blood pressure management
     Dosage: UNK
     Route: 065
  2. PROPOFOL [Suspect]
     Active Substance: PROPOFOL
     Indication: Sedation
     Dosage: AVERAGE RATE OF 8.3 MG/KG/H (3-10.8 MG/KG/H) OVER 65 HOURS
     Route: 065

REACTIONS (1)
  - Myopathy toxic [Unknown]
